FAERS Safety Report 5071528-9 (Version None)
Quarter: 2006Q3

REPORT INFORMATION
  Report Type: 
  Country: None (occurrence: None)
  Receive Date: 20060803
  Receipt Date: 20060803
  Transmission Date: 20061208
  Serious: Yes (Hospitalization)
  Sender: FDA-Public Use
  Company Number: None

PATIENT
  Age: 57 Year
  Sex: Male
  Weight: 72.5755 kg

DRUGS (12)
  1. RIBAVIRIN [Suspect]
     Indication: HEPATITIS C
     Dosage: 400 MG BID PO
     Route: 048
     Dates: start: 20050914, end: 20060802
  2. PEG INTERFERON ALFA 2A  180 MG/ML [Suspect]
     Indication: HEPATITIS C
     Dosage: 180 MCG EVERY WEEK SQ
     Route: 058
     Dates: start: 20050914, end: 20060802
  3. DOXAZOSIN [Concomitant]
  4. EPOETIN ALFA [Concomitant]
  5. HYDROCHLOROTHIAZIDE [Concomitant]
  6. LORAZEPAM [Concomitant]
  7. PEGINTERFERON [Concomitant]
  8. POTASSIUM CHLORIDE [Concomitant]
  9. QUETIAPINE FUMARATE [Concomitant]
  10. RIBAVIRIN [Concomitant]
  11. SERTRALINE [Concomitant]
  12. SIMVASTATIN [Concomitant]

REACTIONS (4)
  - ANAEMIA MACROCYTIC [None]
  - ASTHENIA [None]
  - DIZZINESS [None]
  - DYSPNOEA [None]
